FAERS Safety Report 6105354-6 (Version None)
Quarter: 2009Q1

REPORT INFORMATION
  Report Type: 
  Country: None (occurrence: None)
  Receive Date: 20090306
  Receipt Date: 20090223
  Transmission Date: 20090719
  Serious: Yes (Disabling, Other)
  Sender: FDA-Public Use
  Company Number: DE-PFIZER INC-2009154982

PATIENT

DRUGS (2)
  1. SUTENT [Suspect]
     Indication: METASTATIC RENAL CELL CARCINOMA
     Dosage: 50 MG, 1X/DAY
     Route: 048
     Dates: start: 20080101, end: 20081230
  2. ASPIRIN [Concomitant]
     Dosage: UNK
     Route: 048

REACTIONS (3)
  - ECZEMA [None]
  - ERYTHEMA [None]
  - SKIN ULCER [None]
